FAERS Safety Report 13492747 (Version 1)
Quarter: 2017Q2

REPORT INFORMATION
  Report Type: Spontaneous
  Country: US (occurrence: US)
  Receive Date: 20170427
  Receipt Date: 20170427
  Transmission Date: 20170830
  Serious: Yes (Other)
  Sender: FDA-Public Use
  Company Number: US-MALLINCKRODT-T201701836

PATIENT
  Age: 27 Year
  Sex: Male
  Weight: 72 kg

DRUGS (19)
  1. UVADEX [Suspect]
     Active Substance: METHOXSALEN
     Indication: GRAFT VERSUS HOST DISEASE
     Dosage: UNK
     Route: 057
     Dates: start: 20170308, end: 20170420
  2. ACYCLOVIR. [Concomitant]
     Active Substance: ACYCLOVIR
     Dosage: 800 MG, BID
     Route: 048
  3. CYCLOSPORIN [Concomitant]
     Active Substance: CYCLOSPORINE
     Dosage: 100 MG, BID
     Route: 048
  4. DILAUDID [Concomitant]
     Active Substance: HYDROMORPHONE HYDROCHLORIDE
     Indication: PAIN
     Dosage: 1/2 TABS EVERY 4 H AS NEEDED
     Route: 048
  5. NEURONTIN [Concomitant]
     Active Substance: GABAPENTIN
     Dosage: 200 MG, TID
     Route: 048
  6. TYLENOL [Concomitant]
     Active Substance: ACETAMINOPHEN
     Dosage: 2 TABS EVERZ 4 HOURS
     Route: 048
  7. DULOXETINE. [Concomitant]
     Active Substance: DULOXETINE
     Dosage: 30 MG, QD
     Route: 048
  8. FLUCONAZOLE. [Concomitant]
     Active Substance: FLUCONAZOLE
     Dosage: 200 MG, QD
     Route: 048
  9. PROTONIX [Concomitant]
     Active Substance: PANTOPRAZOLE SODIUM
     Dosage: 40 MG, BID
     Route: 048
  10. LIDOCAINE VISCOUS [Concomitant]
     Active Substance: LIDOCAINE HYDROCHLORIDE
     Dosage: 5 ML, TID
     Route: 048
  11. CALCIUM CARBONATE. [Concomitant]
     Active Substance: CALCIUM CARBONATE
     Dosage: 2 TABS DAILY AS NEEDED
     Route: 048
  12. CELEBREX [Concomitant]
     Active Substance: CELECOXIB
     Dosage: 200 MG, BID
     Route: 048
  13. DAPSONE. [Concomitant]
     Active Substance: DAPSONE
     Dosage: 30 MG, QD
     Route: 048
  14. MYCOSTATIN [Concomitant]
     Active Substance: NYSTATIN
     Dosage: 100,000 U/ML EVERY 4 H
     Route: 048
  15. CREON [Concomitant]
     Active Substance: PANCRELIPASE AMYLASE\PANCRELIPASE LIPASE\PANCRELIPASE PROTEASE
     Dosage: 2-4 CAPSULES TID
     Route: 048
  16. FLEXERIL [Concomitant]
     Active Substance: CYCLOBENZAPRINE HYDROCHLORIDE
     Dosage: 10 MG, TID
     Route: 048
  17. DECADRON [Concomitant]
     Active Substance: DEXAMETHASONE
     Dosage: 2 MG, QID
     Route: 048
  18. FENTANYL TRANSDERMAL SYSTEM [Concomitant]
     Active Substance: FENTANYL
     Dosage: 1 PATCH EVERY 72 H
     Route: 003
  19. HEPARIN [Concomitant]
     Active Substance: HEPARIN SODIUM
     Indication: ANTICOAGULANT THERAPY

REACTIONS (3)
  - Nausea [Unknown]
  - Burning sensation mucosal [Unknown]
  - Flushing [Unknown]
